FAERS Safety Report 17841159 (Version 1)
Quarter: 2020Q2

REPORT INFORMATION
  Report Type: Spontaneous
  Country: US (occurrence: US)
  Receive Date: 20200529
  Receipt Date: 20200529
  Transmission Date: 20200714
  Serious: Yes (Other)
  Sender: FDA-Public Use
  Company Number: US-HORIZON-PRE-0175-2020

PATIENT
  Age: 8 Year
  Sex: Male

DRUGS (1)
  1. PREDNISONE. [Suspect]
     Active Substance: PREDNISONE
     Indication: IDIOPATHIC ORBITAL INFLAMMATION
     Route: 048

REACTIONS (3)
  - Weight increased [Unknown]
  - Crohn^s disease [Unknown]
  - Symptom masked [Unknown]
